FAERS Safety Report 4443524-3 (Version None)
Quarter: 2004Q3

REPORT INFORMATION
  Report Type: 
  Country: None (occurrence: None)
  Receive Date: 20040908
  Receipt Date: 20040906
  Transmission Date: 20050211
  Serious: Yes (Other)
  Sender: FDA-Public Use
  Company Number: PHNU2004DE03128

PATIENT
  Sex: Male

DRUGS (1)
  1. SANDOSTATIN LAR [Suspect]
     Dates: start: 20040301

REACTIONS (4)
  - FLATULENCE [None]
  - FOOD INTOLERANCE [None]
  - GASTROCARDIAC SYNDROME [None]
  - TACHYCARDIA [None]
